FAERS Safety Report 9977007 (Version 1)
Quarter: 2014Q1

REPORT INFORMATION
  Report Type: Report from Study
  Country: US (occurrence: US)
  Receive Date: 20140306
  Receipt Date: 20140306
  Transmission Date: 20141002
  Serious: No
  Sender: FDA-Public Use
  Company Number: US-ABBVIE-13P-163-1166379-00

PATIENT
  Age: 26 Year
  Sex: Female

DRUGS (4)
  1. HUMIRA [Suspect]
     Indication: PSORIASIS
     Dates: start: 20130523
  2. MACROBID [Concomitant]
     Indication: PROPHYLAXIS URINARY TRACT INFECTION
  3. VALTREX [Concomitant]
     Indication: GENITAL HERPES
  4. NUVARING [Concomitant]
     Indication: CONTRACEPTION

REACTIONS (4)
  - Respiratory tract congestion [Not Recovered/Not Resolved]
  - Cough [Not Recovered/Not Resolved]
  - Hepatic enzyme increased [Recovered/Resolved]
  - Pyrexia [Not Recovered/Not Resolved]
